FAERS Safety Report 7070073-9 (Version None)
Quarter: 2010Q4

REPORT INFORMATION
  Report Type: 
  Country: None (occurrence: None)
  Receive Date: 20101028
  Receipt Date: 20101022
  Transmission Date: 20110411
  Serious: Yes (Hospitalization)
  Sender: FDA-Public Use
  Company Number: US-B.I. PHARMACEUTICALS,INC./RIDGEFIELD-2010-BP-11889BP

PATIENT
  Age: 71 Year
  Sex: Female
  Weight: 76.6 kg

DRUGS (8)
  1. MOBIC [Suspect]
     Indication: OSTEOARTHRITIS
     Dosage: 7.5 MG
     Route: 048
     Dates: start: 20100414
  2. TANEZUMAB [Suspect]
     Indication: OSTEOARTHRITIS
     Dosage: Q 8 WEEKS
     Route: 058
     Dates: start: 20091222, end: 20100609
  3. ASPIRIN [Suspect]
     Indication: PROPHYLAXIS
     Dosage: 81 MG
     Route: 048
     Dates: start: 20010610
  4. PRINIVIL [Concomitant]
     Indication: HYPERTENSION
     Dosage: 10 - 12.5MG
     Dates: start: 19900715
  5. CELEXA [Concomitant]
     Indication: DEPRESSION
     Dosage: 40 MG
     Dates: start: 20090110
  6. ULTRAM [Concomitant]
     Indication: PAIN
     Dosage: 50 MG
     Route: 048
     Dates: start: 20081220
  7. PRILOSEC [Concomitant]
     Indication: GASTROOESOPHAGEAL REFLUX DISEASE
     Dosage: 40 MG
     Route: 048
     Dates: start: 20090110
  8. MAGNESIUM [Concomitant]
     Indication: MUSCLE SPASMS
     Dosage: 500MG AS NEEDED
     Route: 048
     Dates: start: 20081220

REACTIONS (5)
  - ANAEMIA [None]
  - DUODENAL ULCER [None]
  - GASTRITIS [None]
  - GASTROINTESTINAL HAEMORRHAGE [None]
  - HIATUS HERNIA [None]
